FAERS Safety Report 11144072 (Version 1)
Quarter: 2015Q2

REPORT INFORMATION
  Report Type: Spontaneous
  Country: US (occurrence: None)
  Receive Date: 20150527
  Receipt Date: 20150527
  Transmission Date: 20150821
  Serious: No
  Sender: FDA-Public Use
  Company Number: None

PATIENT
  Age: 81 Year
  Sex: Male

DRUGS (1)
  1. JAKAFI [Suspect]
     Active Substance: RUXOLITINIB
     Indication: MYELOFIBROSIS
     Dosage: EVERY AM/EVERY PM
     Route: 048
     Dates: start: 20140313

REACTIONS (1)
  - Onychomadesis [None]

NARRATIVE: CASE EVENT DATE: 20150301
